FAERS Safety Report 16565956 (Version 1)
Quarter: 2019Q3

REPORT INFORMATION
  Report Type: Spontaneous
  Country: US (occurrence: US)
  Receive Date: 20190712
  Receipt Date: 20190712
  Transmission Date: 20191004
  Serious: Yes (Other)
  Sender: FDA-Public Use
  Company Number: US-ASSERTIO THERAPEUTICS, INC.-US-2019DEP000645

PATIENT
  Age: 68 Year
  Sex: Female
  Weight: 53.52 kg

DRUGS (2)
  1. GRALISE [Suspect]
     Active Substance: GABAPENTIN
     Indication: PARAESTHESIA
     Dosage: UNK, UNK, UNK
     Route: 065
     Dates: start: 20190621
  2. GRALISE [Suspect]
     Active Substance: GABAPENTIN
     Indication: PROCTALGIA

REACTIONS (3)
  - Blindness [Not Recovered/Not Resolved]
  - Peripheral swelling [Not Recovered/Not Resolved]
  - Product use in unapproved indication [Unknown]

NARRATIVE: CASE EVENT DATE: 20190621
